FAERS Safety Report 11125838 (Version 2)
Quarter: 2015Q3

REPORT INFORMATION
  Report Type: Spontaneous
  Country: US (occurrence: US)
  Receive Date: 20150520
  Receipt Date: 20150720
  Transmission Date: 20151125
  Serious: No
  Sender: FDA-Public Use
  Company Number: US-TEVA-562051USA

PATIENT
  Sex: Female
  Weight: 116.68 kg

DRUGS (2)
  1. INTERFERON BETA NOS [Concomitant]
     Active Substance: INTERFERON BETA
     Indication: MULTIPLE SCLEROSIS
  2. MODAFINIL. [Suspect]
     Active Substance: MODAFINIL
     Indication: MULTIPLE SCLEROSIS
     Dosage: 200 MILLIGRAM DAILY;

REACTIONS (7)
  - Lethargy [Recovered/Resolved]
  - Drug ineffective [Recovered/Resolved]
  - Off label use [Unknown]
  - Fatigue [Recovered/Resolved]
  - Depressed mood [Recovered/Resolved]
  - Product use issue [Unknown]
  - Product substitution issue [Unknown]
